FAERS Safety Report 22197249 (Version 6)
Quarter: 2023Q4

REPORT INFORMATION
  Report Type: Spontaneous
  Country: CA (occurrence: CA)
  Receive Date: 20230411
  Receipt Date: 20231120
  Transmission Date: 20240110
  Serious: Yes (Other)
  Sender: FDA-Public Use
  Company Number: CA-PFIZER INC-202300147067

PATIENT
  Age: 18 Year
  Sex: Male

DRUGS (3)
  1. ABRILADA [Suspect]
     Active Substance: ADALIMUMAB-AFZB
     Indication: Ankylosing spondylitis
     Dosage: 40 MG EVERY 2 WEEKS (EVERY OTHER WEEK)
     Route: 058
     Dates: start: 20220930, end: 20220930
  2. ABRILADA [Suspect]
     Active Substance: ADALIMUMAB-AFZB
     Dosage: 40 MG EVERY 2 WEEKS (EVERY OTHER WEEK)
     Route: 058
     Dates: start: 20230404
  3. NAPROXEN [Concomitant]
     Active Substance: NAPROXEN
     Dosage: 500 MG
     Dates: start: 202107

REACTIONS (2)
  - Arthroscopy [Unknown]
  - Injection site swelling [Recovered/Resolved]

NARRATIVE: CASE EVENT DATE: 20230101
